FAERS Safety Report 4382956-9 (Version None)
Quarter: 2004Q2

REPORT INFORMATION
  Report Type: 
  Country: None (occurrence: None)
  Receive Date: 20040622
  Receipt Date: 20040604
  Transmission Date: 20050107
  Serious: Yes (Life-Threatening, Hospitalization, Disabling, Other)
  Sender: FDA-Public Use
  Company Number: US-MERCK-0406USA00492

PATIENT
  Age: 48 Year
  Sex: Male
  Weight: 81 kg

DRUGS (4)
  1. [THERAPY UNSPECIFIED] [Concomitant]
     Route: 065
  2. ZITHROMAX [Suspect]
     Route: 065
     Dates: start: 20040101
  3. ZOCOR [Suspect]
     Indication: HYPERCHOLESTEROLAEMIA
     Route: 048
  4. ZOCOR [Suspect]
     Indication: HYPERLIPIDAEMIA
     Route: 048

REACTIONS (5)
  - BRONCHITIS [None]
  - DRUG INTERACTION [None]
  - HEPATIC FAILURE [None]
  - RENAL FAILURE ACUTE [None]
  - RHABDOMYOLYSIS [None]
